FAERS Safety Report 12067949 (Version 1)
Quarter: 2016Q1

REPORT INFORMATION
  Report Type: Spontaneous
  Country: US (occurrence: US)
  Receive Date: 20160211
  Receipt Date: 20160211
  Transmission Date: 20160526
  Serious: No
  Sender: FDA-Public Use
  Company Number: US-SMITH AND NEPHEW, INC-2015SMT00183

PATIENT
  Age: 49 Year
  Sex: Male

DRUGS (4)
  1. LANTUS [Concomitant]
     Active Substance: INSULIN GLARGINE
     Dosage: 25 U, 1X/DAY
  2. REGRANEX [Suspect]
     Active Substance: BECAPLERMIN
     Indication: WOUND
     Dosage: UNK UNK, EVERY 48 HOURS
     Route: 061
     Dates: start: 20150608, end: 2015
  3. NOVOLOG SLIDING SCALE [Concomitant]
     Dosage: UNK, 3X/DAY
  4. REGRANEX [Suspect]
     Active Substance: BECAPLERMIN
     Dosage: UNK, 1X/DAY
     Route: 061
     Dates: start: 2015, end: 20150708

REACTIONS (3)
  - Application site paraesthesia [Recovered/Resolved]
  - Insomnia [Recovered/Resolved]
  - Incorrect drug administration duration [Recovered/Resolved]

NARRATIVE: CASE EVENT DATE: 20150608
